FAERS Safety Report 9274995 (Version 2)
Quarter: 2013Q2

REPORT INFORMATION
  Report Type: Spontaneous
  Country: JP (occurrence: None)
  Receive Date: 20130312
  Receipt Date: 20130411
  Transmission Date: 20140414
  Serious: Yes (Other)
  Sender: FDA-Public Use
  Company Number: TCI2013A01063

PATIENT
  Sex: 0

DRUGS (3)
  1. TAKEPRON [Suspect]
     Route: 048
  2. LOXONIN (LOXOPROFEN SODIUM) [Concomitant]
  3. CALONAL (PARACETAMOL) [Concomitant]

REACTIONS (2)
  - Road traffic accident [None]
  - Confusional state [None]
